FAERS Safety Report 8507865-2 (Version None)
Quarter: 2012Q3

REPORT INFORMATION
  Report Type: 
  Country: None (occurrence: None)
  Receive Date: 20120713
  Receipt Date: 20120710
  Transmission Date: 20120928
  Serious: Yes (Hospitalization, Other)
  Sender: FDA-Public Use
  Company Number: PHHY2012FR059798

PATIENT
  Age: 73 Year
  Sex: Female

DRUGS (5)
  1. SIMVASTATIN [Concomitant]
  2. CLOPIDOGREL [Concomitant]
  3. PAROXETINE [Concomitant]
  4. FLUTICASONE PROPIONATE/SALMETEROL [Concomitant]
  5. EXELON [Suspect]
     Indication: MEMORY IMPAIRMENT
     Route: 062
     Dates: start: 20111017

REACTIONS (2)
  - ALCOHOLISM [None]
  - DEPENDENCE [None]
